FAERS Safety Report 14308589 (Version 1)
Quarter: 2017Q4

REPORT INFORMATION
  Report Type: Spontaneous
  Country: CA (occurrence: CA)
  Receive Date: 20171220
  Receipt Date: 20171220
  Transmission Date: 20180321
  Serious: Yes (Hospitalization, Other)
  Sender: FDA-Public Use
  Company Number: CA-CELLTRION INC.-2017CA011009

PATIENT

DRUGS (10)
  1. INFLECTRA [Suspect]
     Active Substance: INFLIXIMAB-DYYB
     Dosage: 10 MG/KG, CYCLIC
     Route: 042
     Dates: start: 20170817, end: 20170817
  2. INFLECTRA [Suspect]
     Active Substance: INFLIXIMAB-DYYB
     Indication: COLITIS ULCERATIVE
     Dosage: 10 MG/KG, CYCLIC
     Route: 042
     Dates: start: 20170809, end: 20170809
  3. INFLECTRA [Suspect]
     Active Substance: INFLIXIMAB-DYYB
     Dosage: 10 MG/KG, CYCLIC
     Route: 042
     Dates: start: 20170901, end: 20170901
  4. PENTASA [Concomitant]
     Active Substance: MESALAMINE
     Dosage: UNK
     Route: 065
  5. MEZAVANT [Concomitant]
     Active Substance: MESALAMINE
     Dosage: UNK
     Route: 065
  6. PREDNISONE. [Concomitant]
     Active Substance: PREDNISONE
     Dosage: UNK
     Route: 065
  7. INFLECTRA [Suspect]
     Active Substance: INFLIXIMAB-DYYB
     Dosage: 670 MG, (10 MG/KG) EVERY4 WEEKS
     Route: 042
  8. INFLECTRA [Suspect]
     Active Substance: INFLIXIMAB-DYYB
     Dosage: 750 MG, CYCLIC (MAINTENANCE FREQUENCY EVERY 4 WEEKS)
     Route: 042
     Dates: start: 20170809, end: 20171116
  9. SALOFALK                           /00000301/ [Concomitant]
     Active Substance: MESALAMINE
     Dosage: UNK
     Route: 065
  10. CORTIFOAM [Concomitant]
     Active Substance: HYDROCORTISONE ACETATE
     Dosage: UNK
     Route: 065

REACTIONS (9)
  - Weight increased [Unknown]
  - Haematochezia [Unknown]
  - Drug effect incomplete [Unknown]
  - Blood glucose decreased [Recovering/Resolving]
  - Headache [Recovering/Resolving]
  - Malaise [Unknown]
  - Abdominal pain [Recovered/Resolved]
  - C-reactive protein increased [Not Recovered/Not Resolved]
  - Product use issue [Unknown]

NARRATIVE: CASE EVENT DATE: 20170922
